FAERS Safety Report 15109959 (Version 1)
Quarter: 2018Q3

REPORT INFORMATION
  Report Type: Spontaneous
  Country: TW (occurrence: TW)
  Receive Date: 20180705
  Receipt Date: 20180705
  Transmission Date: 20181010
  Serious: Yes (Hospitalization, Other)
  Sender: FDA-Public Use
  Company Number: TW-SA-2018SA175037

PATIENT
  Age: 73 Year
  Sex: Female

DRUGS (5)
  1. ACETYLCYSTEINE. [Concomitant]
     Active Substance: ACETYLCYSTEINE
     Indication: SJOGREN^S SYNDROME
  2. ETORICOXIB. [Concomitant]
     Active Substance: ETORICOXIB
     Indication: RHEUMATOID ARTHRITIS
     Dosage: 60 MG, QD
  3. ZOLPIDEM TARTRATE. [Suspect]
     Active Substance: ZOLPIDEM TARTRATE
  4. FOLIC ACID GENERIC [Concomitant]
     Indication: PROPHYLAXIS
     Dosage: 5 MG, QD
     Route: 048
  5. DAILYCARE ACTIBEST [Concomitant]
     Indication: PROPHYLAXIS

REACTIONS (5)
  - Squamous cell carcinoma of the tongue [Not Recovered/Not Resolved]
  - Hypertension [Not Recovered/Not Resolved]
  - Somnambulism [Not Recovered/Not Resolved]
  - Constipation [Not Recovered/Not Resolved]
  - Anxiety [Not Recovered/Not Resolved]

NARRATIVE: CASE EVENT DATE: 20171220
